FAERS Safety Report 8835325 (Version 1)
Quarter: 2012Q4

REPORT INFORMATION
  Report Type: 
  Country: US (occurrence: US)
  Receive Date: 20121011
  Receipt Date: 20121011
  Transmission Date: 20130627
  Serious: Yes (Hospitalization)
  Sender: FDA-Public Use
  Company Number: US-ROCHE-1132908

PATIENT
  Age: 49 Year
  Sex: Male
  Weight: 59.4 kg

DRUGS (9)
  1. ZELBORAF [Suspect]
     Indication: METASTATIC MALIGNANT MELANOMA
     Route: 048
     Dates: start: 20120119, end: 20120912
  2. ZELBORAF [Suspect]
     Route: 065
     Dates: start: 20120927
  3. LOPRESSOR [Concomitant]
     Route: 065
  4. LORAZEPAM [Concomitant]
     Route: 048
  5. ASPIRIN [Concomitant]
     Dosage: taking 1 tablet by mouth nightly.
     Route: 048
  6. GABAPENTIN [Concomitant]
     Dosage: 300 mg
     Route: 065
  7. MOMETASONE [Concomitant]
     Dosage: 0.1% cream
     Route: 065
  8. OMEPRAZOLE [Concomitant]
     Route: 048
  9. SULFASALAZINE [Concomitant]
     Route: 048

REACTIONS (3)
  - Cardiac disorder [Unknown]
  - Tachycardia [Unknown]
  - Electrocardiogram QT prolonged [Unknown]
